FAERS Safety Report 10387205 (Version 1)
Quarter: 2014Q1

REPORT INFORMATION
  Report Type: Spontaneous
  Country: US (occurrence: None)
  Receive Date: 20140306
  Receipt Date: 20140306
  Transmission Date: 20141002
  Serious: Yes (Other)
  Sender: FDA-Public Use
  Company Number: 163-21880-13103563

PATIENT
  Age: 75 Year
  Sex: Male

DRUGS (4)
  1. REVLIMID (LENALIDOMIDE) (15 MILLIGRAM, CAPSULES) [Suspect]
     Indication: PLASMA CELL MYELOMA
     Dosage: 21 IN 21 D
     Route: 048
     Dates: start: 20131003
  2. CYPROHEPTADINE HCL (CYPROHEPTADINE HYDROCHLORIDE) [Concomitant]
  3. HYDROCODONE -ACETAMINOPHEN (REMEDEINE) [Concomitant]
  4. SIMVASTATIN [Concomitant]

REACTIONS (1)
  - Rectal haemorrhage [None]
